FAERS Safety Report 7139098-9 (Version None)
Quarter: 2010Q4

REPORT INFORMATION
  Report Type: 
  Country: None (occurrence: None)
  Receive Date: 20101206
  Receipt Date: 20101130
  Transmission Date: 20110411
  Serious: Yes (Death)
  Sender: FDA-Public Use
  Company Number: B0686878A

PATIENT
  Age: 53 Year
  Sex: Female

DRUGS (1)
  1. TRIZIVIR [Suspect]
     Indication: HIV INFECTION
     Route: 048

REACTIONS (1)
  - DEATH [None]
